FAERS Safety Report 21839522 (Version 1)
Quarter: 2023Q1

REPORT INFORMATION
  Report Type: Spontaneous
  Country: US (occurrence: US)
  Receive Date: 20230109
  Receipt Date: 20230109
  Transmission Date: 20230418
  Serious: Yes (Other)
  Sender: FDA-Public Use
  Company Number: US-BRISTOL-MYERS SQUIBB COMPANY-2022-118632

PATIENT
  Age: 34 Year
  Sex: Male

DRUGS (1)
  1. OPDIVO [Suspect]
     Active Substance: NIVOLUMAB
     Indication: Rectal cancer
     Dosage: DOSE : 480 MG;     FREQ : ^ONCE EVERY 28 DAYS^
     Route: 042
     Dates: start: 20220714

REACTIONS (1)
  - Malignant neoplasm progression [Unknown]
